FAERS Safety Report 4829148-4 (Version None)
Quarter: 2005Q4

REPORT INFORMATION
  Report Type: 
  Country: None (occurrence: None)
  Receive Date: 20051027
  Receipt Date: 20041014
  Transmission Date: 20060501
  Serious: Yes (Hospitalization)
  Sender: FDA-Public Use
  Company Number: USA-2004-0017235

PATIENT
  Age: 35 Year
  Sex: Female
  Weight: 61.2 kg

DRUGS (2)
  1. SPECTRACEF [Suspect]
     Indication: PHARYNGITIS
     Dosage: 400 MG, BID, ORAL
     Route: 048
     Dates: start: 20040924, end: 20040929
  2. SPECTRACEF [Suspect]
     Indication: SINOBRONCHITIS
     Dosage: 400 MG, BID, ORAL
     Route: 048
     Dates: start: 20040924, end: 20040929

REACTIONS (5)
  - ABDOMINAL PAIN [None]
  - CLOSTRIDIAL INFECTION [None]
  - CLOSTRIDIUM COLITIS [None]
  - DIARRHOEA [None]
  - HAEMATOCHEZIA [None]
